FAERS Safety Report 10925275 (Version 1)
Quarter: 2015Q1

REPORT INFORMATION
  Report Type: Spontaneous
  Country: None (occurrence: None)
  Receive Date: 20150316
  Receipt Date: 20150316
  Transmission Date: 20150721
  Serious: No
  Sender: FDA-Public Use
  Company Number: None

PATIENT
  Age: 23 Year
  Sex: Female
  Weight: 86.18 kg

DRUGS (1)
  1. TROKENDI XR [Suspect]
     Active Substance: TOPIRAMATE
     Indication: MIGRAINE
     Route: 048
     Dates: start: 20150202

REACTIONS (6)
  - Memory impairment [None]
  - Dizziness [None]
  - Sedation [None]
  - Irritability [None]
  - Paraesthesia [None]
  - Confusional state [None]

NARRATIVE: CASE EVENT DATE: 20150315
